FAERS Safety Report 5121943-X (Version None)
Quarter: 2006Q4

REPORT INFORMATION
  Report Type: 
  Country: None (occurrence: None)
  Receive Date: 20061003
  Receipt Date: 20060925
  Transmission Date: 20070319
  Serious: No
  Sender: FDA-Public Use
  Company Number: E2090-00104-SPO-JP

PATIENT
  Age: 11 Year
  Sex: Female

DRUGS (2)
  1. ZONISAMIDE [Suspect]
     Indication: EPILEPSY
     Dosage: 150 MG, 1 IN 1 D, ORAL
     Route: 048
     Dates: start: 20060822, end: 20060911
  2. VALPROATE SODIUM [Concomitant]

REACTIONS (2)
  - LIP HAEMORRHAGE [None]
  - STEVENS-JOHNSON SYNDROME [None]
